FAERS Safety Report 6424826-8 (Version None)
Quarter: 2009Q4

REPORT INFORMATION
  Report Type: 
  Country: None (occurrence: None)
  Receive Date: 20091103
  Receipt Date: 20091028
  Transmission Date: 20100525
  Serious: Yes (Other)
  Sender: FDA-Public Use
  Company Number: PHHY2009LT47090

PATIENT
  Age: 4 Year
  Sex: Male

DRUGS (1)
  1. ELIDEL [Suspect]
     Indication: DERMATITIS ATOPIC
     Dosage: TWICE A DAY
     Route: 061
     Dates: start: 20070205, end: 20070209

REACTIONS (2)
  - HERPES DERMATITIS [None]
  - RASH VESICULAR [None]
